FAERS Safety Report 6567413-3 (Version None)
Quarter: 2010Q1

REPORT INFORMATION
  Report Type: 
  Country: None (occurrence: None)
  Receive Date: 20100202
  Receipt Date: 20100126
  Transmission Date: 20100710
  Serious: Yes (Hospitalization)
  Sender: FDA-Public Use
  Company Number: US-GILEAD-2009-0026175

PATIENT
  Sex: Female
  Weight: 98.518 kg

DRUGS (13)
  1. LETAIRIS [Suspect]
     Indication: PULMONARY ARTERIAL HYPERTENSION
     Route: 048
     Dates: start: 20090129
  2. WARFARIN SODIUM [Concomitant]
  3. LASIX [Concomitant]
  4. IMDUR [Concomitant]
  5. NORVASC [Concomitant]
  6. LEVOBUNOLOL HCL [Concomitant]
  7. CLONIDINE [Concomitant]
  8. ZOCOR [Concomitant]
  9. REQUIP [Concomitant]
  10. ZESTRIL [Concomitant]
  11. GLIPIZIDE [Concomitant]
  12. STOOL SOFTENER [Concomitant]
  13. CALCIUM [Concomitant]

REACTIONS (4)
  - ANAEMIA [None]
  - CARDIAC FAILURE CONGESTIVE [None]
  - COAGULOPATHY [None]
  - GASTROINTESTINAL HAEMORRHAGE [None]
